FAERS Safety Report 21087138 (Version 7)
Quarter: 2024Q1

REPORT INFORMATION
  Report Type: Spontaneous
  Country: JP (occurrence: JP)
  Receive Date: 20220715
  Receipt Date: 20240125
  Transmission Date: 20240410
  Serious: Yes (Life-Threatening, Hospitalization, Other)
  Sender: FDA-Public Use
  Company Number: JP-HBP-2022JP027012

PATIENT
  Age: 82 Year
  Sex: Male
  Weight: 54.9 kg

DRUGS (19)
  1. ALOXI [Suspect]
     Active Substance: PALONOSETRON HYDROCHLORIDE
     Indication: Prophylaxis of nausea and vomiting
     Dosage: 0.053 MILLIGRAM(S) (0.75 MILLIGRAM(S), 1 IN 2 WEEK)
     Route: 041
     Dates: start: 20181203, end: 20220106
  2. ALOXI [Suspect]
     Active Substance: PALONOSETRON HYDROCHLORIDE
     Dosage: 0.75 MILLIGRAM(S) (0.75 MILLIGRAM(S), 1 IN 1 DAY)
     Route: 042
     Dates: start: 20220210, end: 20220210
  3. VECTIBIX [Suspect]
     Active Substance: PANITUMUMAB
     Indication: Rectal cancer metastatic
     Dosage: 25.71 MILLIGRAM(S) (360 MILLIGRAM(S), 1 IN 2 WEEK)
     Route: 041
     Dates: start: 20190110
  4. VECTIBIX [Suspect]
     Active Substance: PANITUMUMAB
     Dosage: 14.28 MILLIGRAM(S) (200 MILLIGRAM(S), 1 IN 2 WEEK)
     Route: 041
     Dates: start: 20210121, end: 20210805
  5. VECTIBIX [Suspect]
     Active Substance: PANITUMUMAB
     Dosage: 14.28 MILLIGRAM(S) (200 MILLIGRAM(S), 1 IN 2 WEEK)
     Route: 041
     Dates: start: 20211028, end: 20220106
  6. OXALIPLATIN [Suspect]
     Active Substance: OXALIPLATIN
     Indication: Rectal cancer metastatic
     Dosage: 9.285 MILLIGRAM(S) (130 MILLIGRAM(S), 1 IN 2 WEEK)
     Route: 041
     Dates: start: 20181203, end: 20220110
  7. OXALIPLATIN [Suspect]
     Active Substance: OXALIPLATIN
     Dosage: 100.0 MILLIGRAM(S) (100 MILLIGRAM(S), 1 IN 1 DAY)
     Route: 041
     Dates: start: 20220210, end: 20220210
  8. FLUOROURACIL [Suspect]
     Active Substance: FLUOROURACIL
     Indication: Rectal cancer metastatic
     Dosage: 313.5 MILLIGRAM(S) (4390 MILLIGRAM(S), 1 IN 2 WEEK)
     Route: 041
     Dates: start: 20181203, end: 20220106
  9. FLUOROURACIL [Suspect]
     Active Substance: FLUOROURACIL
     Dosage: 30250 MILLIGRAM(S) (2750 MILLIGRAM(S), 11 IN 1 DAY)
     Route: 041
     Dates: start: 20220210, end: 20220210
  10. LEVOLEUCOVORIN CALCIUM [Suspect]
     Active Substance: LEVOLEUCOVORIN CALCIUM
     Indication: Rectal cancer metastatic
     Dosage: 22.85 MILLIGRAM(S) (320 MILLIGRAM(S), 1 IN 2 WEEK)
     Route: 041
     Dates: start: 20181203, end: 20220106
  11. LEVOLEUCOVORIN CALCIUM [Suspect]
     Active Substance: LEVOLEUCOVORIN CALCIUM
     Dosage: 225.0 MILLIGRAM(S) (225 MILLIGRAM(S), 1 IN 1 DAY)
     Route: 042
     Dates: start: 20220210, end: 20220210
  12. BEVACIZUMAB [Suspect]
     Active Substance: BEVACIZUMAB
     Indication: Rectal cancer metastatic
     Dosage: 21.42 MILLIGRAM(S) (300 MILLIGRAM(S), 1 IN 2 WEEK)
     Route: 041
     Dates: start: 20181203, end: 20181217
  13. BEVACIZUMAB [Suspect]
     Active Substance: BEVACIZUMAB
     Dosage: 200.0 MILLIGRAM(S) (200 MILLIGRAM(S), 1 IN 1 DAY)
     Route: 041
     Dates: start: 20220210, end: 20220210
  14. POLARAMINE [Concomitant]
     Active Substance: DEXCHLORPHENIRAMINE MALEATE
     Indication: Product used for unknown indication
     Dosage: 0.357 MILLIGRAM(S) (5 MILLIGRAM(S), 1 IN 2 WEEK)
     Route: 041
     Dates: start: 20190110, end: 20220106
  15. POLARAMINE [Concomitant]
     Active Substance: DEXCHLORPHENIRAMINE MALEATE
     Dosage: 5.0 MILLIGRAM(S) (5 MILLIGRAM(S), 1 IN 1 DAY)
     Route: 042
     Dates: start: 20220210, end: 20220210
  16. MAGNESIUM SULFATE HEPTAHYDRATE [Concomitant]
     Active Substance: MAGNESIUM SULFATE HEPTAHYDRATE
     Indication: Product used for unknown indication
     Dosage: 20.0 MILLIEQUIVALENT(S) (20 MILLIEQUIVALENT(S), 1 IN 1 DAY)
     Route: 041
     Dates: start: 20200625, end: 20211216
  17. HEPARIN [Concomitant]
     Active Substance: HEPARIN SODIUM
     Indication: Product used for unknown indication
     Dosage: 2000 INTERNATIONAL UNIT(S) (2000 INTERNATIONAL UNIT(S), 1 IN 1 DAY)
     Route: 042
     Dates: start: 20220210, end: 20220210
  18. DECADRON (DEXAMETHASONE SODIUM PHOSPHATE) [Concomitant]
     Active Substance: DEXAMETHASONE SODIUM PHOSPHATE
     Indication: Product used for unknown indication
     Dosage: 0.857 MILLIGRAM(S) (12 MILLIGRAM(S), 1 IN 2 WEEK)
     Route: 041
     Dates: start: 20181213, end: 20220106
  19. DECADRON (DEXAMETHASONE SODIUM PHOSPHATE) [Concomitant]
     Active Substance: DEXAMETHASONE SODIUM PHOSPHATE
     Dosage: 12.0 MILLIGRAM(S) (12 MILLIGRAM(S), 1 IN 1 DAY)
     Route: 042
     Dates: start: 20220210, end: 20220210

REACTIONS (9)
  - Ventricular tachycardia [Unknown]
  - Ventricular fibrillation [Unknown]
  - Torsade de pointes [Recovering/Resolving]
  - Atrial fibrillation [Unknown]
  - Cardio-respiratory arrest [Unknown]
  - Electrocardiogram QT prolonged [Unknown]
  - Hypomagnesaemia [Unknown]
  - Pyrexia [Unknown]
  - Ventricular extrasystoles [Unknown]

NARRATIVE: CASE EVENT DATE: 20220106
